FAERS Safety Report 18392292 (Version 5)
Quarter: 2023Q2

REPORT INFORMATION
  Report Type: Spontaneous
  Country: US (occurrence: US)
  Receive Date: 20201016
  Receipt Date: 20230531
  Transmission Date: 20230721
  Serious: Yes (Other)
  Sender: FDA-Public Use
  Company Number: US-JNJFOC-20201013237

PATIENT
  Age: 65 Year
  Sex: Female

DRUGS (9)
  1. ELMIRON [Suspect]
     Active Substance: PENTOSAN POLYSULFATE SODIUM
     Indication: Cystitis interstitial
     Route: 048
     Dates: start: 20080828, end: 20090827
  2. ELMIRON [Suspect]
     Active Substance: PENTOSAN POLYSULFATE SODIUM
     Route: 048
     Dates: start: 20090926, end: 20091026
  3. ELMIRON [Suspect]
     Active Substance: PENTOSAN POLYSULFATE SODIUM
     Route: 048
     Dates: start: 20091118, end: 20111031
  4. ELMIRON [Suspect]
     Active Substance: PENTOSAN POLYSULFATE SODIUM
     Route: 048
     Dates: start: 20130415, end: 20131215
  5. ELMIRON [Suspect]
     Active Substance: PENTOSAN POLYSULFATE SODIUM
     Route: 048
     Dates: start: 20140124, end: 20140124
  6. TOPIRAMATE [Concomitant]
     Active Substance: TOPIRAMATE
     Indication: Migraine
     Dates: start: 20180831, end: 20200618
  7. FLUOXETINE [Concomitant]
     Active Substance: FLUOXETINE HYDROCHLORIDE
     Indication: Depression
     Dates: start: 20180930, end: 20200623
  8. SIMVASTATIN [Concomitant]
     Active Substance: SIMVASTATIN
     Indication: Blood cholesterol abnormal
     Dates: start: 20181020, end: 20200718
  9. FLUDROCORTISONE [Concomitant]
     Active Substance: FLUDROCORTISONE
     Indication: Glucocorticoids abnormal
     Dates: start: 20181109, end: 20200726

REACTIONS (2)
  - Neovascular age-related macular degeneration [Not Recovered/Not Resolved]
  - Dry age-related macular degeneration [Not Recovered/Not Resolved]

NARRATIVE: CASE EVENT DATE: 20200518
